FAERS Safety Report 8210970-1 (Version None)
Quarter: 2012Q1

REPORT INFORMATION
  Report Type: 
  Country: None (occurrence: None)
  Receive Date: 20120315
  Receipt Date: 20120306
  Transmission Date: 20120608
  Serious: Yes (Life-Threatening, Hospitalization)
  Sender: FDA-Public Use
  Company Number: CA-JNJFOC-20120304014

PATIENT
  Sex: Female
  Weight: 76.2 kg

DRUGS (4)
  1. REMICADE [Suspect]
     Route: 042
  2. REMICADE [Suspect]
     Indication: CROHN'S DISEASE
     Route: 042
  3. COLESTID [Concomitant]
     Indication: CROHN'S DISEASE
     Dosage: 2 TABLETS IN MORNING AND 1 TABLET IN EVENING
  4. VITAMIN B-12 [Concomitant]
     Indication: ILEOSTOMY
     Route: 065

REACTIONS (5)
  - DEHYDRATION [None]
  - INTESTINAL PERFORATION [None]
  - INTESTINAL RESECTION [None]
  - ILEOSTOMY [None]
  - CROHN'S DISEASE [None]
